FAERS Safety Report 6464201-3 (Version None)
Quarter: 2009Q4

REPORT INFORMATION
  Report Type: 
  Country: None (occurrence: None)
  Receive Date: 20091110
  Receipt Date: 20090721
  Transmission Date: 20100525
  Serious: No
  Sender: FDA-Public Use
  Company Number: 1000007626

PATIENT
  Age: 72 Year
  Sex: Male

DRUGS (7)
  1. SAVELLA [Suspect]
     Indication: FIBROMYALGIA
     Dosage: 12.5 MG (12.5 MG,1 IN 1 D), ORAL
     Route: 048
     Dates: start: 20090702, end: 20090704
  2. PERCOCET [Concomitant]
  3. TRAZODONE [Concomitant]
  4. XANAX [Concomitant]
  5. VALIUM [Concomitant]
  6. KLONOPIN [Concomitant]
  7. MELATONIN [Concomitant]

REACTIONS (2)
  - IRRITABILITY [None]
  - PSYCHOMOTOR HYPERACTIVITY [None]
